FAERS Safety Report 6983396-6 (Version None)
Quarter: 2010Q3

REPORT INFORMATION
  Report Type: 
  Country: None (occurrence: None)
  Receive Date: 20100914
  Receipt Date: 20100914
  Transmission Date: 20110219
  Serious: Yes (Life-Threatening, Hospitalization)
  Sender: FDA-Public Use
  Company Number: None

PATIENT
  Age: 40 Year
  Sex: Male
  Weight: 77.1115 kg

DRUGS (1)
  1. ACCUTANE [Suspect]
     Indication: ACNE
     Dosage: 2 PE DAY, MONTHS
     Dates: start: 19950101, end: 19951029

REACTIONS (7)
  - ALOPECIA [None]
  - CENTRAL NERVOUS SYSTEM INFECTION [None]
  - DISTURBANCE IN ATTENTION [None]
  - HAIR COLOUR CHANGES [None]
  - INFECTION [None]
  - PAIN [None]
  - SUICIDAL IDEATION [None]
